FAERS Safety Report 4832459-X (Version None)
Quarter: 2005Q4

REPORT INFORMATION
  Report Type: 
  Country: None (occurrence: None)
  Receive Date: 20051117
  Receipt Date: 20051031
  Transmission Date: 20060501
  Serious: Yes (Other)
  Sender: FDA-Public Use
  Company Number: TRP_0638_2005

PATIENT
  Age: 50 Year
  Sex: Male

DRUGS (12)
  1. RIBASPHERE [Suspect]
     Indication: HEPATITIS C
     Dosage: 600 MG BID; PO
     Route: 048
     Dates: start: 20041210, end: 20050104
  2. INFERGEN [Suspect]
     Indication: HEPATITIS C
     Dosage: 15 MCG QDAY; SC
     Route: 058
     Dates: start: 20041210, end: 20050104
  3. RIBASPHERE/RIBAVIRIN/THREE RIVERS PHARM/200MG [Suspect]
     Indication: HEPATITIS C
     Dosage: 600 MG QDAY; PO
     Route: 048
     Dates: start: 20050111, end: 20050213
  4. INFERGEN/INTERFERON ALFACON-1/INTERMUNNE [Suspect]
     Indication: HEPATITIS C
     Dosage: 6 MCG QDAY; SC
     Route: 058
     Dates: start: 20050111, end: 20050213
  5. RIBASPHERE/RIBAVIRIN/THREE RIVERS PHARM/200 MG [Suspect]
     Indication: HEPATITIS C
     Dosage: 600 MG QDAY; PO
     Route: 048
     Dates: start: 20050215, end: 20050527
  6. INFERGEN [Suspect]
     Indication: HEPATITIS C
     Dosage: 6 MCG QDAY; SC
     Route: 058
     Dates: start: 20050215, end: 20050527
  7. ZYREXA [Concomitant]
  8. ASPIRIN [Concomitant]
  9. MIRTAZAPINE [Concomitant]
  10. ACIPHEX [Concomitant]
  11. VICODIN [Concomitant]
  12. TYLENOL [Concomitant]

REACTIONS (6)
  - ABDOMINAL TENDERNESS [None]
  - ARTHRALGIA [None]
  - DRUG TOXICITY [None]
  - FLANK PAIN [None]
  - HYPERURICAEMIA [None]
  - JOINT SWELLING [None]
